FAERS Safety Report 12618138 (Version 2)
Quarter: 2016Q3

REPORT INFORMATION
  Report Type: Report from Study
  Country: US (occurrence: US)
  Receive Date: 20160803
  Receipt Date: 20160822
  Transmission Date: 20161109
  Serious: No
  Sender: FDA-Public Use
  Company Number: US-AMGEN-USASL2016096740

PATIENT
  Age: 80 Year
  Sex: Female

DRUGS (3)
  1. KEFLEX [Suspect]
     Active Substance: CEPHALEXIN
     Indication: PRODUCT USED FOR UNKNOWN INDICATION
     Dosage: UNK, QID
     Route: 065
     Dates: start: 2016
  2. KEFLEX [Suspect]
     Active Substance: CEPHALEXIN
     Dosage: UNK, BID
     Route: 065
     Dates: start: 2016
  3. ENBREL [Suspect]
     Active Substance: ETANERCEPT
     Indication: RHEUMATOID ARTHRITIS
     Dosage: 50 MG, QWK
     Route: 065
     Dates: start: 20160630

REACTIONS (4)
  - Localised infection [Unknown]
  - Malaise [Unknown]
  - Diarrhoea [Unknown]
  - High frequency ablation [Unknown]

NARRATIVE: CASE EVENT DATE: 2016
